FAERS Safety Report 19846204 (Version 2)
Quarter: 2021Q3

REPORT INFORMATION
  Report Type: Spontaneous
  Country: CZ (occurrence: CZ)
  Receive Date: 20210916
  Receipt Date: 20210930
  Transmission Date: 20211014
  Serious: Yes (Other)
  Sender: FDA-Public Use
  Company Number: CZ-SA-2021SA305548

PATIENT
  Age: 54 Year
  Sex: Male

DRUGS (1)
  1. OMNIC [Suspect]
     Active Substance: TAMSULOSIN HYDROCHLORIDE
     Indication: BENIGN PROSTATIC HYPERPLASIA
     Dosage: 0.4 MG, ONCE DAILY (0?0?1)
     Route: 048
     Dates: start: 20210725

REACTIONS (2)
  - Pruritus [Unknown]
  - Facial discomfort [Unknown]

NARRATIVE: CASE EVENT DATE: 202107
